FAERS Safety Report 6171561-X (Version None)
Quarter: 2009Q2

REPORT INFORMATION
  Report Type: 
  Country: None (occurrence: None)
  Receive Date: 20090428
  Receipt Date: 20090428
  Transmission Date: 20091009
  Serious: Yes (Other)
  Sender: FDA-Public Use
  Company Number: None

PATIENT
  Age: 40 Year
  Sex: Female
  Weight: 60.3284 kg

DRUGS (1)
  1. CHLORAPREP ONE-STEP [Suspect]
     Indication: BLOOD DONOR
     Dosage: 1.5ML FREPP APPLICATOR ONE TIME TOP
     Route: 061
     Dates: start: 20090411, end: 20090411

REACTIONS (1)
  - HYPERSENSITIVITY [None]
